FAERS Safety Report 10652579 (Version 13)
Quarter: 2015Q2

REPORT INFORMATION
  Report Type: Report from Study
  Country: US (occurrence: US)
  Receive Date: 20141215
  Receipt Date: 20150417
  Transmission Date: 20150821
  Serious: Yes (Other)
  Sender: FDA-Public Use
  Company Number: US-SA-2014SA152876

PATIENT
  Age: 55 Year
  Sex: Female
  Weight: 61.23 kg

DRUGS (6)
  1. ALLEGRA [Concomitant]
     Active Substance: FEXOFENADINE HYDROCHLORIDE
     Indication: COUGH
  2. AUBAGIO [Suspect]
     Active Substance: TERIFLUNOMIDE
     Indication: MULTIPLE SCLEROSIS
     Route: 048
     Dates: start: 20150325
  3. ALLEGRA-D [Concomitant]
     Active Substance: FEXOFENADINE\PSEUDOEPHEDRINE
  4. CELEXA [Concomitant]
     Active Substance: CITALOPRAM HYDROBROMIDE
     Dosage: STRENGTH: 20 MG
  5. AUBAGIO [Suspect]
     Active Substance: TERIFLUNOMIDE
     Indication: MULTIPLE SCLEROSIS
     Route: 048
     Dates: start: 20141101, end: 20150324
  6. ALLEGRA [Concomitant]
     Active Substance: FEXOFENADINE HYDROCHLORIDE
     Indication: NASAL CONGESTION

REACTIONS (28)
  - Infection [Unknown]
  - Rash pruritic [Recovered/Resolved]
  - Balance disorder [Unknown]
  - Drug dose omission [Unknown]
  - Insomnia [Not Recovered/Not Resolved]
  - Hyperhidrosis [Unknown]
  - Peripheral coldness [Unknown]
  - Decreased appetite [Unknown]
  - Weight decreased [Unknown]
  - Dry mouth [Unknown]
  - Feeling abnormal [Unknown]
  - Dizziness [Unknown]
  - Alopecia [Unknown]
  - Rash [Unknown]
  - Hot flush [Unknown]
  - Dysuria [Unknown]
  - Muscular weakness [Unknown]
  - Dyspepsia [Unknown]
  - Tremor [Unknown]
  - Sinus disorder [Unknown]
  - Abdominal pain upper [Unknown]
  - Urinary tract infection [Unknown]
  - Fall [Unknown]
  - Dyspnoea [Unknown]
  - Nausea [Unknown]
  - Injury [Unknown]
  - Flatulence [Unknown]
  - Sweat gland disorder [Unknown]

NARRATIVE: CASE EVENT DATE: 2014
